FAERS Safety Report 19783391 (Version 1)
Quarter: 2021Q3

REPORT INFORMATION
  Report Type: Spontaneous
  Country: JP (occurrence: JP)
  Receive Date: 20210902
  Receipt Date: 20210902
  Transmission Date: 20211014
  Serious: Yes (Life-Threatening, Hospitalization, Other)
  Sender: FDA-Public Use
  Company Number: JP-TAKEDA-2021TJP083197

PATIENT
  Age: 1 Year
  Sex: Male
  Weight: 9 kg

DRUGS (1)
  1. BUCCOLAM OROMUCOSAL SOLUTION 5MG [Suspect]
     Active Substance: MIDAZOLAM HYDROCHLORIDE
     Indication: FEBRILE CONVULSION
     Dosage: 5 MILLIGRAM, SINGLE
     Route: 048
     Dates: start: 20210820, end: 20210820

REACTIONS (1)
  - Respiratory arrest [Recovered/Resolved]

NARRATIVE: CASE EVENT DATE: 20210820
